FAERS Safety Report 17787541 (Version 1)
Quarter: 2020Q2

REPORT INFORMATION
  Report Type: Spontaneous
  Country: CH (occurrence: CH)
  Receive Date: 20200514
  Receipt Date: 20200514
  Transmission Date: 20200714
  Serious: Yes (Hospitalization, Other)
  Sender: FDA-Public Use
  Company Number: CH-ASTRAZENECA-2020SE59822

PATIENT
  Age: 77 Year
  Sex: Male

DRUGS (13)
  1. ENTUMINE [Suspect]
     Active Substance: CLOTHIAPINE
     Route: 065
     Dates: start: 201902, end: 20190711
  2. ENTUMINE [Suspect]
     Active Substance: CLOTHIAPINE
     Dosage: DECREASE
     Route: 065
     Dates: start: 20190711, end: 20190719
  3. REMERON [Suspect]
     Active Substance: MIRTAZAPINE
     Route: 048
     Dates: end: 20190719
  4. LIPANTHYL [Concomitant]
     Active Substance: FENOFIBRATE
  5. LAXOBERON [Concomitant]
     Active Substance: SODIUM PICOSULFATE
  6. XANAX [Concomitant]
     Active Substance: ALPRAZOLAM
     Dosage: INCREASED
     Dates: start: 20190719
  7. LUVIT D3 [Concomitant]
     Active Substance: CHOLECALCIFEROL
  8. ZOLPIDEM [Concomitant]
     Active Substance: ZOLPIDEM TARTRATE
  9. SEROQUEL XR [Suspect]
     Active Substance: QUETIAPINE FUMARATE
     Route: 048
     Dates: end: 20190719
  10. ANAFRANIL [Suspect]
     Active Substance: CLOMIPRAMINE HYDROCHLORIDE
     Route: 048
     Dates: start: 201902, end: 20190719
  11. ATACAND [Concomitant]
     Active Substance: CANDESARTAN CILEXETIL
  12. XALATAN [Suspect]
     Active Substance: LATANOPROST
     Dosage: 1 DROP DAILY IN EACH EYE
     Route: 047
  13. XANAX [Concomitant]
     Active Substance: ALPRAZOLAM
     Dates: end: 20190711

REACTIONS (2)
  - Neuroleptic malignant syndrome [Recovered/Resolved]
  - Hyperhidrosis [Recovered/Resolved]

NARRATIVE: CASE EVENT DATE: 201902
